FAERS Safety Report 25452620 (Version 1)
Quarter: 2025Q2

REPORT INFORMATION
  Report Type: Spontaneous
  Country: US (occurrence: US)
  Receive Date: 20250618
  Receipt Date: 20250618
  Transmission Date: 20250717
  Serious: No
  Sender: BLUEPRINT MEDICINES
  Company Number: US-Blueprint Medicines Corporation-2025-AER-01287

PATIENT
  Age: 37 Year
  Sex: Male

DRUGS (1)
  1. AYVAKIT [Suspect]
     Active Substance: AVAPRITINIB
     Indication: Mastocytoma
     Route: 065
     Dates: start: 20210930

REACTIONS (12)
  - Food allergy [Unknown]
  - Temperature intolerance [Unknown]
  - Sunburn [Recovering/Resolving]
  - Food poisoning [Unknown]
  - Stress [Unknown]
  - Memory impairment [Unknown]
  - Confusional state [Unknown]
  - Aphasia [Unknown]
  - Somnolence [Unknown]
  - Skin discolouration [Unknown]
  - Hair colour changes [Unknown]
  - Alanine aminotransferase increased [Unknown]

NARRATIVE: CASE EVENT DATE: 20250201
